FAERS Safety Report 18067020 (Version 3)
Quarter: 2020Q3

REPORT INFORMATION
  Report Type: Spontaneous
  Country: JP (occurrence: JP)
  Receive Date: 20200724
  Receipt Date: 20200828
  Transmission Date: 20201103
  Serious: Yes (Hospitalization, Other)
  Sender: FDA-Public Use
  Company Number: JP-SA-2020SA180280

PATIENT

DRUGS (24)
  1. TACROLIMUS. [Suspect]
     Active Substance: TACROLIMUS
     Indication: ENTEROCOLITIS
     Dosage: 0.8 MG, QD
     Route: 048
  2. AZATHIOPRINE. [Suspect]
     Active Substance: AZATHIOPRINE
     Indication: ENTEROCOLITIS
     Dosage: 50 MG, QD
     Route: 048
  3. MELPHALAN. [Suspect]
     Active Substance: MELPHALAN
     Indication: BONE MARROW CONDITIONING REGIMEN
     Route: 065
  4. PREDNISOLONE. [Suspect]
     Active Substance: PREDNISOLONE
     Indication: INFLAMMATORY BOWEL DISEASE
     Dosage: 30 MG
  5. AZATHIOPRINE. [Suspect]
     Active Substance: AZATHIOPRINE
     Indication: INFLAMMATORY BOWEL DISEASE
  6. TACROLIMUS. [Suspect]
     Active Substance: TACROLIMUS
     Indication: CROHN^S DISEASE
  7. ADALIMUMAB [Suspect]
     Active Substance: ADALIMUMAB
     Indication: INFLAMMATORY BOWEL DISEASE
  8. ADALIMUMAB [Suspect]
     Active Substance: ADALIMUMAB
     Indication: CROHN^S DISEASE
  9. ETOPOSIDE. [Suspect]
     Active Substance: ETOPOSIDE
     Indication: BONE MARROW CONDITIONING REGIMEN
     Route: 065
  10. TOCILIZUMAB. [Suspect]
     Active Substance: TOCILIZUMAB
     Indication: TAKAYASU^S ARTERITIS
  11. 5?AMINOSALICYLIC ACID [Concomitant]
     Active Substance: MESALAMINE
     Indication: ENTEROCOLITIS
     Route: 065
  12. 5?AMINOSALICYLIC ACID [Concomitant]
     Active Substance: MESALAMINE
     Indication: INFLAMMATORY BOWEL DISEASE
  13. PREDNISOLONE. [Suspect]
     Active Substance: PREDNISOLONE
     Indication: ENTEROCOLITIS
     Dosage: 6.5 MG
  14. PREDNISOLONE. [Suspect]
     Active Substance: PREDNISOLONE
     Indication: COLITIS
  15. ANTI?THYMOCYTE GLOBULIN (RABBIT) NOS [Suspect]
     Active Substance: LAPINE T-LYMPHOCYTE IMMUNE GLOBULIN
     Indication: BONE MARROW CONDITIONING REGIMEN
     Route: 065
  16. AZATHIOPRINE. [Suspect]
     Active Substance: AZATHIOPRINE
     Indication: CROHN^S DISEASE
  17. INFLIXIMAB [Suspect]
     Active Substance: INFLIXIMAB
     Indication: ENTEROCOLITIS
     Route: 065
  18. TACROLIMUS. [Suspect]
     Active Substance: TACROLIMUS
     Indication: INFLAMMATORY BOWEL DISEASE
  19. TOCILIZUMAB. [Suspect]
     Active Substance: TOCILIZUMAB
     Indication: TAKAYASU^S ARTERITIS
     Dosage: 560 MG, QOW
     Route: 042
  20. PREDNISOLONE. [Suspect]
     Active Substance: PREDNISOLONE
     Indication: CROHN^S DISEASE
     Dosage: 4 MG, QD
     Route: 048
  21. FLUDARABINE PHOSPHATE. [Suspect]
     Active Substance: FLUDARABINE PHOSPHATE
     Indication: BONE MARROW CONDITIONING REGIMEN
     Route: 065
  22. AZATHIOPRINE. [Suspect]
     Active Substance: AZATHIOPRINE
     Indication: TAKAYASU^S ARTERITIS
  23. INFLIXIMAB [Suspect]
     Active Substance: INFLIXIMAB
     Indication: INFLAMMATORY BOWEL DISEASE
  24. ADALIMUMAB [Suspect]
     Active Substance: ADALIMUMAB
     Indication: ENTEROCOLITIS
     Dosage: 40 MG, QOW
     Route: 058

REACTIONS (13)
  - Graft versus host disease in skin [Unknown]
  - Haemophagocytic lymphohistiocytosis [Unknown]
  - Bacteraemia [Unknown]
  - Systemic infection [Unknown]
  - Off label use [Unknown]
  - Subcutaneous abscess [Unknown]
  - Herpes zoster [Unknown]
  - Folliculitis [Unknown]
  - Bacterial infection [Unknown]
  - Graft versus host disease in gastrointestinal tract [Unknown]
  - Septic shock [Unknown]
  - Device related infection [Unknown]
  - Mycobacterium abscessus infection [Unknown]
